FAERS Safety Report 8666162 (Version 5)
Quarter: 2013Q1

REPORT INFORMATION
  Report Type: Spontaneous
  Country: US (occurrence: US)
  Receive Date: 20120716
  Receipt Date: 20130306
  Transmission Date: 20140127
  Serious: Yes (Hospitalization)
  Sender: FDA-Public Use
  Company Number: US-009507513-2012SP011830

PATIENT
  Sex: Female
  Weight: 79.83 kg

DRUGS (3)
  1. NUVARING [Suspect]
     Indication: CONTRACEPTION
     Dosage: UNK
     Route: 067
     Dates: start: 20090129
  2. COUMADIN [Suspect]
     Indication: THROMBOSIS
  3. NEXIUM [Concomitant]
     Indication: GASTROOESOPHAGEAL REFLUX DISEASE

REACTIONS (7)
  - Vena cava thrombosis [Unknown]
  - Cholelithiasis [Unknown]
  - Diverticulum [Unknown]
  - Cerebral thrombosis [Unknown]
  - Drug hypersensitivity [Unknown]
  - Renal disorder [Unknown]
  - Deep vein thrombosis [Unknown]
